FAERS Safety Report 13685477 (Version 6)
Quarter: 2018Q1

REPORT INFORMATION
  Report Type: Spontaneous
  Country: NL (occurrence: NL)
  Receive Date: 20170623
  Receipt Date: 20180301
  Transmission Date: 20180508
  Serious: Yes (Life-Threatening, Hospitalization, Other)
  Sender: FDA-Public Use
  Company Number: NL-BAUSCH-BL-2017-019501

PATIENT
  Age: 53 Year
  Sex: Female

DRUGS (4)
  1. CALCIUM GLUCONATE. [Suspect]
     Active Substance: CALCIUM GLUCONATE
     Indication: CARDIOGENIC SHOCK
     Route: 040
  2. HERBESSER [Suspect]
     Active Substance: DILTIAZEM HYDROCHLORIDE
     Indication: INTENTIONAL OVERDOSE
     Dosage: TOTAL
     Route: 065
  3. CALCIUM GLUCONATE. [Suspect]
     Active Substance: CALCIUM GLUCONATE
     Dosage: EVERY HOUR
     Route: 040
  4. CALCIUM GLUCONATE. [Suspect]
     Active Substance: CALCIUM GLUCONATE
     Dosage: EVERY HOUR
     Route: 040

REACTIONS (1)
  - Toxicity to various agents [Recovering/Resolving]
